FAERS Safety Report 6875419-X (Version None)
Quarter: 2010Q3

REPORT INFORMATION
  Report Type: 
  Country: None (occurrence: None)
  Receive Date: 20100727
  Receipt Date: 20100722
  Transmission Date: 20110219
  Serious: Yes (Other)
  Sender: FDA-Public Use
  Company Number: US-B.I. PHARMACEUTICALS,INC./RIDGEFIELD-2010-BP-06410BP

PATIENT
  Sex: Male

DRUGS (7)
  1. SPIRIVA [Suspect]
     Indication: CHRONIC OBSTRUCTIVE PULMONARY DISEASE
     Dosage: 18 MCG
     Route: 055
     Dates: start: 20040101
  2. METHADONE HCL [Concomitant]
     Indication: PAIN
  3. XELODO [Concomitant]
  4. EMEND [Concomitant]
  5. ALBUTEROL [Concomitant]
  6. ONDASTERON [Concomitant]
  7. MORPHINE SULFATE [Concomitant]

REACTIONS (3)
  - EPIGLOTTIC CARCINOMA [None]
  - LUNG NEOPLASM MALIGNANT [None]
  - NEOPLASM [None]
